FAERS Safety Report 5596591-8 (Version None)
Quarter: 2008Q1

REPORT INFORMATION
  Report Type: 
  Country: None (occurrence: None)
  Receive Date: 20080118
  Receipt Date: 20080107
  Transmission Date: 20080703
  Serious: Yes (Other)
  Sender: FDA-Public Use
  Company Number: CA-PFIZER INC-2007101390

PATIENT
  Sex: Female

DRUGS (41)
  1. LYRICA [Suspect]
     Route: 048
  2. VITACAL [Concomitant]
     Dosage: TEXT:600MG/ 400 IU
     Route: 048
  3. VITAMIN B-12 [Concomitant]
     Route: 048
  4. ANTIMIGRAINE PREPARATIONS [Concomitant]
  5. LOXAPINE [Concomitant]
     Route: 048
  6. PANTOPRAZOLE SODIUM [Concomitant]
     Route: 048
  7. FOLIC ACID [Concomitant]
     Route: 048
  8. ZOPICLONE [Concomitant]
     Route: 048
  9. KYTRIL [Concomitant]
     Route: 048
  10. MELOXICAM [Concomitant]
     Route: 048
  11. PREMARIN [Concomitant]
     Route: 048
     Dates: start: 20060719, end: 20070629
  12. PREMARIN [Concomitant]
     Route: 048
  13. PREMARIN [Concomitant]
     Route: 048
  14. SYNTHROID [Concomitant]
     Route: 048
  15. CLONAZEPAM [Concomitant]
     Route: 048
  16. DOCUSATE SODIUM [Concomitant]
     Route: 048
  17. FENTANYL [Concomitant]
  18. CYSTISTAT [Concomitant]
     Dosage: TEXT:40MG/ 50ML WEEKLY
  19. NOVO-MAPROTILINE [Concomitant]
     Route: 048
     Dates: start: 20070403, end: 20070410
  20. EPIPEN [Concomitant]
     Dosage: TEXT:1MG./ML INJECTION
  21. XYLOCAINE TOPICAL FILM [Concomitant]
     Dates: start: 20050407
  22. SENNA [Concomitant]
     Route: 048
     Dates: start: 20060120
  23. TETRACYCLINE [Concomitant]
  24. GENERAL NUTRIENTS/MINERALS/VITAMINS [Concomitant]
  25. LECITHIN [Concomitant]
  26. PENICILLIN [Concomitant]
  27. SULFONAMIDES [Concomitant]
  28. CODEINE [Concomitant]
  29. MEPERIDINE [Concomitant]
  30. MORPHINE [Concomitant]
  31. LACTAID [Concomitant]
     Route: 048
     Dates: start: 20040213
  32. RISPERIDONE [Concomitant]
     Route: 048
     Dates: start: 20070528, end: 20070820
  33. HYDERM [Concomitant]
     Dates: start: 20070530
  34. APO-METRONIDAZOLE [Concomitant]
     Route: 048
     Dates: start: 20070608, end: 20070615
  35. NASONEX [Concomitant]
     Route: 045
  36. MICROLAX [Concomitant]
     Route: 054
     Dates: start: 20060206
  37. TOBRADEX [Concomitant]
     Route: 047
     Dates: start: 20040521
  38. CIPROFLOXACIN [Concomitant]
     Route: 048
     Dates: start: 20040629
  39. GABAPENTIN [Concomitant]
     Route: 048
     Dates: start: 20071203
  40. GABAPENTIN [Concomitant]
     Route: 048
     Dates: start: 20071206
  41. TRYPTAN [Concomitant]
     Route: 048
     Dates: start: 20040914

REACTIONS (1)
  - DENTAL CARIES [None]
